FAERS Safety Report 15822845 (Version 15)
Quarter: 2021Q4

REPORT INFORMATION
  Report Type: Spontaneous
  Country: US (occurrence: US)
  Receive Date: 20190114
  Receipt Date: 20211231
  Transmission Date: 20220304
  Serious: No
  Sender: FDA-Public Use
  Company Number: US-PFIZER INC-2019006857

PATIENT
  Age: 12 Year
  Sex: Male
  Weight: 27.211 kg

DRUGS (5)
  1. GENOTROPIN [Suspect]
     Active Substance: SOMATROPIN
     Indication: Growth failure
     Dosage: UNK
  2. GENOTROPIN [Suspect]
     Active Substance: SOMATROPIN
     Indication: Short stature
     Dosage: UNK
  3. GENOTROPIN [Suspect]
     Active Substance: SOMATROPIN
     Dosage: UNK
  4. GENOTROPIN [Suspect]
     Active Substance: SOMATROPIN
     Dosage: 1 MG, DAILY
     Dates: start: 20190118
  5. GENOTROPIN [Suspect]
     Active Substance: SOMATROPIN
     Dosage: 1.5 MG, ONCE DAILY (BY INJECTION)
     Dates: start: 201901

REACTIONS (6)
  - Wrong technique in device usage process [Unknown]
  - Device use error [Unknown]
  - Drug dose omission by device [Unknown]
  - Product quality issue [Unknown]
  - Device breakage [Unknown]
  - Fear of injection [Not Recovered/Not Resolved]

NARRATIVE: CASE EVENT DATE: 20190201
